FAERS Safety Report 21065516 (Version 20)
Quarter: 2023Q4

REPORT INFORMATION
  Report Type: Spontaneous
  Country: AR (occurrence: AR)
  Receive Date: 20220711
  Receipt Date: 20231122
  Transmission Date: 20240110
  Serious: Yes (Hospitalization, Other)
  Sender: FDA-Public Use
  Company Number: AR-ASTELLAS-2022US024382

PATIENT
  Age: 78 Year
  Sex: Male

DRUGS (11)
  1. ENZALUTAMIDE [Suspect]
     Active Substance: ENZALUTAMIDE
     Indication: Prostate cancer metastatic
     Dosage: 40 MG, (EVERY 21 DAYS)
     Route: 048
     Dates: start: 20220425, end: 20220627
  2. ENZALUTAMIDE [Suspect]
     Active Substance: ENZALUTAMIDE
     Route: 048
     Dates: start: 20221222, end: 20230117
  3. ELIGARD [Suspect]
     Active Substance: LEUPROLIDE ACETATE
     Indication: Prostate cancer metastatic
     Dosage: 22.5 MG, CYCLIC (EVERY 21 DAYS) (INJECTABLE)
     Route: 065
     Dates: start: 20220425
  4. TAMSULOSIN [Concomitant]
     Active Substance: TAMSULOSIN
     Indication: Benign prostatic hyperplasia
     Dosage: UNK UNK, UNKNOWN FREQ. (TABLET)
     Route: 065
     Dates: start: 20151201
  5. ENALAPRIL\HYDROCHLOROTHIAZIDE [Concomitant]
     Active Substance: ENALAPRIL\HYDROCHLOROTHIAZIDE
     Indication: Arteriosclerosis coronary artery
     Dosage: UNK UNK, UNKNOWN FREQ.
     Route: 065
     Dates: start: 19991201, end: 20220713
  6. Atel [Concomitant]
     Indication: Arteriosclerosis coronary artery
     Dosage: UNK UNK, UNKNOWN FREQ.
     Route: 065
     Dates: start: 19991201, end: 20220713
  7. ALPRAZOLAM [Concomitant]
     Active Substance: ALPRAZOLAM
     Indication: Insomnia
     Dosage: UNK UNK, UNKNOWN FREQ.
     Route: 065
     Dates: start: 19991201
  8. Sinlip [Concomitant]
     Indication: Arteriosclerosis coronary artery
     Dosage: UNK UNK, UNKNOWN FREQ.
     Route: 065
     Dates: start: 19991201
  9. TRUSOPT [Concomitant]
     Active Substance: DORZOLAMIDE HYDROCHLORIDE
     Indication: Glaucoma
     Dosage: UNK UNK, UNKNOWN FREQ.
     Route: 065
     Dates: start: 19801201
  10. LOUTEN [Concomitant]
     Indication: Glaucoma
     Dosage: UNK UNK, UNKNOWN FREQ.
     Route: 065
     Dates: start: 19991201
  11. ABIRATERONE [Concomitant]
     Active Substance: ABIRATERONE
     Indication: Product used for unknown indication
     Dosage: UNK UNK, UNKNOWN FREQ.
     Route: 065

REACTIONS (9)
  - COVID-19 pneumonia [Not Recovered/Not Resolved]
  - Acute kidney injury [Recovered/Resolved]
  - Atrial fibrillation [Recovered/Resolved]
  - Neutropenia [Recovered/Resolved]
  - Neutropenia [Recovered/Resolved]
  - Thrombocytopenia [Unknown]
  - Intensive care unit acquired weakness [Recovered/Resolved with Sequelae]
  - Cerebral haemorrhage [Recovered/Resolved]
  - Anaemia [Unknown]

NARRATIVE: CASE EVENT DATE: 20220527
